FAERS Safety Report 16691800 (Version 1)
Quarter: 2019Q3

REPORT INFORMATION
  Report Type: Spontaneous
  Country: US (occurrence: US)
  Receive Date: 20190625
  Receipt Date: 20190625
  Transmission Date: 20191004
  Serious: Yes (Death)
  Sender: FDA-Public Use
  Company Number: None

PATIENT
  Age: 61 Year
  Sex: Female

DRUGS (3)
  1. LETAIRIS [Suspect]
     Active Substance: AMBRISENTAN
     Indication: PULMONARY ARTERIAL HYPERTENSION
     Route: 048
     Dates: start: 20160619, end: 20190513
  2. LETAIRIS [Suspect]
     Active Substance: AMBRISENTAN
     Indication: CONNECTIVE TISSUE DISORDER
     Route: 048
     Dates: start: 20160619, end: 20190513
  3. LETAIRIS [Suspect]
     Active Substance: AMBRISENTAN
     Indication: CONGENITAL HEART VALVE DISORDER
     Route: 048
     Dates: start: 20160619, end: 20190513

REACTIONS (2)
  - Lung neoplasm malignant [None]
  - Neoplasm malignant [None]

NARRATIVE: CASE EVENT DATE: 20190513
